FAERS Safety Report 9415868 (Version 3)
Quarter: 2014Q2

REPORT INFORMATION
  Report Type: Report from Study
  Country: US (occurrence: US)
  Receive Date: 20130724
  Receipt Date: 20140626
  Transmission Date: 20141212
  Serious: Yes (Other)
  Sender: FDA-Public Use
  Company Number: US-BIOGENIDEC-2013BI065384

PATIENT
  Age: 63 Year
  Sex: Male

DRUGS (10)
  1. TYSABRI [Suspect]
     Indication: MULTIPLE SCLEROSIS
     Route: 042
     Dates: start: 20091207
  2. AVONEX [Concomitant]
     Indication: MULTIPLE SCLEROSIS
     Route: 030
     Dates: start: 20091101
  3. AMPYRA [Concomitant]
     Indication: MULTIPLE SCLEROSIS
     Dates: start: 20100930
  4. NUVIGIL [Concomitant]
     Indication: FATIGUE
     Dates: start: 20110518
  5. KEPPRA XR [Concomitant]
     Indication: MYOCLONUS
     Dates: start: 20100630
  6. CYMBALTA [Concomitant]
     Indication: PAIN
     Dates: start: 20100419
  7. GABAPENTIN [Concomitant]
     Dates: start: 20090430
  8. MS CONTIN [Concomitant]
     Indication: PAIN
  9. MOBIC [Concomitant]
     Indication: PAIN
     Dates: start: 20100202
  10. BACLOFEN [Concomitant]
     Indication: PAIN
     Dates: start: 20090806

REACTIONS (1)
  - Chronic lymphocytic leukaemia [Not Recovered/Not Resolved]
